FAERS Safety Report 25902440 (Version 1)
Quarter: 2025Q4

REPORT INFORMATION
  Report Type: Spontaneous
  Country: US (occurrence: None)
  Receive Date: 20251009
  Receipt Date: 20251009
  Transmission Date: 20260118
  Serious: Yes (Other)
  Sender: FDA-CTU
  Company Number: None

PATIENT
  Sex: Male

DRUGS (8)
  1. NUCALA [Suspect]
     Active Substance: MEPOLIZUMAB
     Indication: Asthma
     Route: 058
     Dates: start: 20230314
  2. ALBUTEROL AER HFA [Concomitant]
  3. BUPROPN HCL TAB 150MG XL [Concomitant]
  4. ESCITALOPRAM TAB 5MG [Concomitant]
  5. LOSARTAN POT TAB 50MG [Concomitant]
  6. MONTELUKAST SODIUM [Concomitant]
     Active Substance: MONTELUKAST SODIUM
  7. OMEPRAZOLE [Concomitant]
     Active Substance: OMEPRAZOLE
  8. OZEMPIC INJ 2MG/3ML [Concomitant]

REACTIONS (5)
  - Asthma [None]
  - Nasopharyngitis [None]
  - Lower respiratory tract infection [None]
  - Impaired quality of life [None]
  - Injection site reaction [None]
